FAERS Safety Report 9521577 (Version 9)
Quarter: 2015Q1

REPORT INFORMATION
  Report Type: Report from Study
  Country: CA (occurrence: CA)
  Receive Date: 20130913
  Receipt Date: 20150108
  Transmission Date: 20150721
  Serious: Yes (Hospitalization, Other)
  Sender: FDA-Public Use
  Company Number: CA-ROCHE-1135496

PATIENT
  Age: 55 Year
  Sex: Female
  Weight: 132.4 kg

DRUGS (17)
  1. SPIRONOLACTONE. [Concomitant]
     Active Substance: SPIRONOLACTONE
  2. VERAPAMIL [Concomitant]
     Active Substance: VERAPAMIL HYDROCHLORIDE
  3. EMPRACET (ACETAMINOPHEN/CODEINE PHOSPHATE) [Concomitant]
  4. ELAVIL [Concomitant]
     Active Substance: AMITRIPTYLINE HYDROCHLORIDE
  5. DOCUSATE [Concomitant]
     Active Substance: DOCUSATE
  6. METHOTREXATE [Concomitant]
     Active Substance: METHOTREXATE
  7. FOLIC ACID. [Concomitant]
     Active Substance: FOLIC ACID
  8. ATASOL PLAIN [Concomitant]
  9. FLUNARIZINE [Concomitant]
     Active Substance: FLUNARIZINE
  10. PREDNISONE. [Concomitant]
     Active Substance: PREDNISONE
  11. SULFASALAZINE. [Concomitant]
     Active Substance: SULFASALAZINE
  12. ASPIRIN. [Concomitant]
     Active Substance: ASPIRIN
  13. PULMICORT TURBUHALER [Concomitant]
     Active Substance: BUDESONIDE
  14. VENTOLIN [Concomitant]
     Active Substance: ALBUTEROL SULFATE
  15. RITUXAN [Suspect]
     Active Substance: RITUXIMAB
     Indication: RHEUMATOID ARTHRITIS
     Route: 042
     Dates: start: 20120913
  16. HYDROXYCHLOROQUINE [Concomitant]
     Active Substance: HYDROXYCHLOROQUINE
  17. METFORMIN [Concomitant]
     Active Substance: METFORMIN HYDROCHLORIDE

REACTIONS (6)
  - Respiratory tract infection [Not Recovered/Not Resolved]
  - Pyelonephritis acute [Recovered/Resolved]
  - Incision site abscess [Recovering/Resolving]
  - Breast cancer [Unknown]
  - Migraine [Recovered/Resolved]
  - Upper respiratory tract infection [Recovered/Resolved]

NARRATIVE: CASE EVENT DATE: 20120913
